FAERS Safety Report 8760912 (Version 1)
Quarter: 2012Q4

REPORT INFORMATION
  Report Type: 
  Country: US (occurrence: US)
  Receive Date: 20120830
  Receipt Date: 20120830
  Transmission Date: 20130627
  Serious: No
  Sender: FDA-Public Use
  Company Number: US-JNJFOC-20120809727

PATIENT
  Age: 3 None
  Sex: Female

DRUGS (3)
  1. INVEGA SUSTENNA [Suspect]
     Indication: SCHIZOPHRENIA
     Route: 065
  2. ZYPREXA [Concomitant]
     Route: 065
  3. MOOD STABILIZER, NOS [Concomitant]
     Route: 065

REACTIONS (1)
  - Blood prolactin abnormal [Unknown]
